FAERS Safety Report 14432316 (Version 7)
Quarter: 2018Q1

REPORT INFORMATION
  Report Type: Report from Study
  Country: None (occurrence: HU)
  Receive Date: 20180124
  Receipt Date: 20180315
  Transmission Date: 20180509
  Serious: Yes (Death, Hospitalization)
  Sender: FDA-Public Use
  Company Number: HU-ABBVIE-18P-076-2232869-00

PATIENT
  Age: 73 Year
  Sex: Male
  Weight: 50 kg

DRUGS (5)
  1. STALEVO [Concomitant]
     Active Substance: CARBIDOPA\ENTACAPONE\LEVODOPA
     Indication: PARKINSON^S DISEASE
     Dosage: 150/37.5 MG
     Route: 048
     Dates: start: 20140828
  2. DUODOPA [Suspect]
     Active Substance: CARBIDOPA\LEVODOPA
     Indication: PARKINSON^S DISEASE
     Dosage: MORNING DOSE 4.2ML; CONTINUOUS DOSE 3.8ML/H;EXTRA DOSE 2.0ML
     Route: 050
     Dates: start: 20131011, end: 20180223
  3. RIVOTRIL [Concomitant]
     Active Substance: CLONAZEPAM
     Indication: ANXIETY
     Dosage: FREQUENCY TEXT : MORN.:1;NOON:1,EVEN.:2 TABLETS
     Route: 048
  4. CITAGEN [Concomitant]
     Indication: DEPRESSION
     Route: 048
     Dates: start: 20160927
  5. MADOPAR [Concomitant]
     Active Substance: BENSERAZIDE HYDROCHLORIDE\LEVODOPA
     Indication: PARKINSON^S DISEASE
     Route: 048
     Dates: start: 20140828

REACTIONS (7)
  - General physical health deterioration [Unknown]
  - Parkinson^s disease [Not Recovered/Not Resolved]
  - Aspiration [Recovered/Resolved]
  - Fall [Not Recovered/Not Resolved]
  - Dysphagia [Not Recovered/Not Resolved]
  - Drug ineffective [Unknown]
  - Circulatory collapse [Fatal]

NARRATIVE: CASE EVENT DATE: 201712
